FAERS Safety Report 9632280 (Version 2)
Quarter: 2014Q1

REPORT INFORMATION
  Report Type: Report from Study
  Country: JP (occurrence: JP)
  Receive Date: 20131018
  Receipt Date: 20140228
  Transmission Date: 20141002
  Serious: Yes (Life-Threatening)
  Sender: FDA-Public Use
  Company Number: JP-SA-2013SA104953

PATIENT
  Age: 83 Year
  Sex: Female
  Weight: 48 kg

DRUGS (92)
  1. THYMOGLOBULINE [Suspect]
     Indication: APLASTIC ANAEMIA
     Dosage: THYMOGLOBULINE 150 MG WAS ADMINISTERED OVER 12 HOURS
     Route: 042
     Dates: start: 20121017, end: 20121021
  2. SANGLOPOR [Concomitant]
     Dosage: 2 VIAL
     Route: 042
     Dates: start: 20121015, end: 20121017
  3. MAXIPIME [Concomitant]
     Indication: UNEVALUABLE EVENT
     Dosage: 2 VIAL
     Route: 042
     Dates: start: 20121017, end: 20121017
  4. MAXIPIME [Concomitant]
     Indication: UNEVALUABLE EVENT
     Dosage: 2V
     Route: 042
     Dates: start: 20121119, end: 20121119
  5. MAXIPIME [Concomitant]
     Indication: UNEVALUABLE EVENT
     Dosage: 2V
     Route: 042
     Dates: start: 20121120, end: 20121122
  6. MAXIPIME [Concomitant]
     Indication: UNEVALUABLE EVENT
     Dosage: 2V
     Route: 042
     Dates: start: 20121123, end: 20121123
  7. OMEPRAL [Concomitant]
     Indication: PROPHYLAXIS
     Dosage: 1 V
     Route: 042
     Dates: start: 20121017, end: 20121019
  8. OMEPRAL [Concomitant]
     Indication: PROPHYLAXIS
     Route: 042
     Dates: start: 20121020, end: 20121022
  9. OMEPRAL [Concomitant]
     Indication: PROPHYLAXIS
     Route: 042
     Dates: start: 20121023, end: 20121026
  10. GRAN [Concomitant]
     Indication: UNEVALUABLE EVENT
     Dosage: 1VIAL
     Route: 042
     Dates: start: 20121017, end: 20121019
  11. GRAN [Concomitant]
     Indication: UNEVALUABLE EVENT
     Dosage: 1V
     Route: 042
     Dates: start: 20121020, end: 20121022
  12. GRAN [Concomitant]
     Indication: UNEVALUABLE EVENT
     Dosage: 1V
     Route: 042
     Dates: start: 20131023, end: 20131026
  13. GRAN [Concomitant]
     Indication: UNEVALUABLE EVENT
     Dosage: 1V
     Route: 042
     Dates: start: 20121027, end: 20121029
  14. GRAN [Concomitant]
     Indication: UNEVALUABLE EVENT
     Dosage: 1V
     Route: 042
     Dates: start: 20121030, end: 20121031
  15. GRAN [Concomitant]
     Indication: UNEVALUABLE EVENT
     Dosage: 1V
     Route: 042
     Dates: start: 20121101, end: 20121103
  16. GRAN [Concomitant]
     Indication: UNEVALUABLE EVENT
     Dosage: 1V
     Route: 042
     Dates: start: 20121103, end: 20121104
  17. GRAN [Concomitant]
     Indication: UNEVALUABLE EVENT
     Dosage: 1A
     Route: 042
     Dates: start: 20121105, end: 20121106
  18. GRAN [Concomitant]
     Indication: UNEVALUABLE EVENT
     Dosage: 1V
     Route: 042
     Dates: start: 20121109, end: 20121109
  19. GRAN [Concomitant]
     Indication: UNEVALUABLE EVENT
     Dosage: 1V
     Route: 042
     Dates: start: 20121110, end: 20121110
  20. CANCIDAS [Concomitant]
     Indication: UNEVALUABLE EVENT
     Dosage: 1 VIAL
     Route: 041
     Dates: start: 20121017, end: 20121019
  21. CANCIDAS [Concomitant]
     Indication: UNEVALUABLE EVENT
     Dosage: 1V
     Route: 041
     Dates: start: 20121020, end: 20121022
  22. CANCIDAS [Concomitant]
     Indication: UNEVALUABLE EVENT
     Dosage: 1V
     Route: 041
     Dates: start: 20121023, end: 20121026
  23. CANCIDAS [Concomitant]
     Indication: UNEVALUABLE EVENT
     Dosage: 1V
     Route: 042
     Dates: start: 20121027, end: 20121029
  24. CANCIDAS [Concomitant]
     Indication: UNEVALUABLE EVENT
     Dosage: 1V
     Route: 042
     Dates: start: 20121030, end: 20121031
  25. CHLOR-TRIMETON [Concomitant]
     Dosage: 1 VIAL
     Route: 042
     Dates: start: 20121017, end: 20121021
  26. SOL-MELCORT [Concomitant]
     Dosage: 1 VIAL
     Route: 042
     Dates: start: 20121017, end: 20121021
  27. SOL-MELCORT [Concomitant]
     Route: 042
     Dates: start: 20121027, end: 20121027
  28. SOL-MELCORT [Concomitant]
     Dosage: 2A
     Route: 042
     Dates: start: 20121124, end: 20121124
  29. ROPION [Concomitant]
     Indication: UNEVALUABLE EVENT
     Dosage: 1 A
     Route: 042
     Dates: start: 20121017, end: 20121017
  30. ROPION [Concomitant]
     Indication: UNEVALUABLE EVENT
     Dosage: 1A
     Route: 042
     Dates: start: 20121126, end: 20121126
  31. PREDOPA [Concomitant]
     Dosage: 1 V
     Route: 042
     Dates: start: 20121017, end: 20121017
  32. MEROPEN [Concomitant]
     Indication: UNEVALUABLE EVENT
     Dosage: 2 V
     Route: 042
     Dates: start: 20121017, end: 20121017
  33. MEROPEN [Concomitant]
     Indication: UNEVALUABLE EVENT
     Dosage: 2V
     Route: 042
     Dates: start: 20121020, end: 20121022
  34. MEROPEN [Concomitant]
     Indication: UNEVALUABLE EVENT
     Dosage: 2V
     Route: 042
     Dates: start: 20121023, end: 20121026
  35. MEROPEN [Concomitant]
     Indication: UNEVALUABLE EVENT
     Dosage: 2V
     Route: 042
     Dates: start: 20121027, end: 20121029
  36. MEROPEN [Concomitant]
     Indication: UNEVALUABLE EVENT
     Dosage: 1V
     Route: 042
     Dates: start: 20121123, end: 20121123
  37. MEROPEN [Concomitant]
     Indication: UNEVALUABLE EVENT
     Dosage: 1V
     Route: 042
     Dates: start: 20121124, end: 20121126
  38. VANCOMYCIN [Concomitant]
     Indication: UNEVALUABLE EVENT
     Dosage: 2 VIAL
     Route: 042
     Dates: start: 20121017, end: 20121017
  39. VANCOMYCIN [Concomitant]
     Indication: UNEVALUABLE EVENT
     Dosage: 2V
     Route: 042
     Dates: start: 20121020, end: 20121022
  40. VANCOMYCIN [Concomitant]
     Indication: UNEVALUABLE EVENT
     Dosage: 2 V
     Route: 042
     Dates: start: 20121023, end: 20121026
  41. VANCOMYCIN [Concomitant]
     Indication: UNEVALUABLE EVENT
     Dosage: 2V
     Route: 042
     Dates: start: 20121027, end: 20121029
  42. SERENACE [Concomitant]
     Dosage: 1 A
     Route: 042
     Dates: start: 20121017, end: 20121017
  43. SERENACE [Concomitant]
     Route: 042
     Dates: start: 20121023, end: 20121023
  44. ROHYPNOL [Concomitant]
     Dosage: 1A
     Route: 042
     Dates: start: 20121017, end: 20121017
  45. TARGOCID [Concomitant]
     Indication: DISEASE PROGRESSION
     Dosage: 2V
     Route: 042
     Dates: start: 20121102, end: 20121102
  46. TARGOCID [Concomitant]
     Indication: DISEASE PROGRESSION
     Dosage: 2V
     Route: 042
     Dates: start: 20121103, end: 20121105
  47. TARGOCID [Concomitant]
     Indication: DISEASE PROGRESSION
     Dosage: 2V
     Route: 042
     Dates: start: 20121108, end: 20121109
  48. TARGOCID [Concomitant]
     Indication: DISEASE PROGRESSION
     Dosage: 2V
     Route: 042
     Dates: start: 20121110, end: 20121112
  49. PANTOL [Concomitant]
     Indication: UNEVALUABLE EVENT
     Dosage: 4A, 2A
     Route: 042
     Dates: start: 20121029, end: 20121031
  50. PANTOL [Concomitant]
     Indication: UNEVALUABLE EVENT
     Dosage: 2A
     Route: 042
     Dates: start: 20121101, end: 20121102
  51. PANTOL [Concomitant]
     Indication: UNEVALUABLE EVENT
     Dosage: 4A
     Route: 042
     Dates: start: 20121103, end: 20121105
  52. PANTOL [Concomitant]
     Indication: UNEVALUABLE EVENT
     Dosage: 6A
     Route: 042
     Dates: start: 20121106, end: 20121107
  53. PANTOL [Concomitant]
     Indication: UNEVALUABLE EVENT
     Dosage: 6A
     Route: 042
     Dates: start: 20121108, end: 20121109
  54. PANTOL [Concomitant]
     Indication: UNEVALUABLE EVENT
     Dosage: 6A
     Route: 042
     Dates: start: 20121110, end: 20121112
  55. METILON [Concomitant]
     Indication: UNEVALUABLE EVENT
     Dosage: 1A
     Route: 042
     Dates: start: 20121019, end: 20121019
  56. METILON [Concomitant]
     Indication: UNEVALUABLE EVENT
     Dosage: 1A
     Route: 042
     Dates: start: 20121124, end: 20121124
  57. PREDONINE [Concomitant]
     Indication: UNEVALUABLE EVENT
     Dosage: 1A
     Route: 042
     Dates: start: 20121029, end: 20121029
  58. PREDONINE [Concomitant]
     Indication: UNEVALUABLE EVENT
     Dosage: 1A
     Route: 042
     Dates: start: 20121030, end: 20121103
  59. PREDONINE [Concomitant]
     Indication: UNEVALUABLE EVENT
     Dosage: 0.5A
     Route: 042
     Dates: start: 20121104, end: 20121109
  60. PREDONINE [Concomitant]
     Indication: UNEVALUABLE EVENT
     Dosage: 0.5 A
     Route: 042
     Dates: start: 20121110, end: 20121110
  61. C-PARA [Concomitant]
     Indication: UNEVALUABLE EVENT
     Dosage: 1A
     Route: 042
     Dates: start: 20121029, end: 20121029
  62. C-PARA [Concomitant]
     Indication: UNEVALUABLE EVENT
     Dosage: 1A
     Route: 042
     Dates: start: 20121031, end: 20121102
  63. FINIBAX [Concomitant]
     Indication: UNEVALUABLE EVENT
     Dosage: 2V
     Route: 042
     Dates: start: 20121029, end: 20121029
  64. FINIBAX [Concomitant]
     Indication: UNEVALUABLE EVENT
     Dosage: 2V
     Route: 042
     Dates: start: 20121030, end: 20121102
  65. FINIBAX [Concomitant]
     Indication: UNEVALUABLE EVENT
     Dosage: 2V
     Route: 042
     Dates: start: 20121103, end: 20121105
  66. FINIBAX [Concomitant]
     Indication: UNEVALUABLE EVENT
     Dosage: 2V
     Route: 042
     Dates: start: 20121106, end: 20121107
  67. FINIBAX [Concomitant]
     Indication: UNEVALUABLE EVENT
     Dosage: 2V
     Route: 042
     Dates: start: 20121108, end: 20121109
  68. VFEND [Concomitant]
     Indication: UNEVALUABLE EVENT
     Dosage: 1.5 V
     Route: 042
     Dates: start: 20121101, end: 20121101
  69. VFEND [Concomitant]
     Indication: UNEVALUABLE EVENT
     Dosage: 1.5 V
     Route: 042
     Dates: start: 20121102, end: 20121107
  70. VFEND [Concomitant]
     Indication: UNEVALUABLE EVENT
     Dosage: 1V
     Route: 042
     Dates: start: 20121108, end: 20121109
  71. VFEND [Concomitant]
     Indication: UNEVALUABLE EVENT
     Dosage: 1V
     Route: 042
     Dates: start: 20121110, end: 20121112
  72. VFEND [Concomitant]
     Indication: UNEVALUABLE EVENT
     Dosage: 1V
     Route: 042
     Dates: start: 20121113, end: 20121116
  73. VFEND [Concomitant]
     Indication: UNEVALUABLE EVENT
     Dosage: 1V
     Route: 042
     Dates: start: 20121117, end: 20121119
  74. VFEND [Concomitant]
     Indication: UNEVALUABLE EVENT
     Dosage: 1V
     Route: 042
     Dates: start: 20121120, end: 20121122
  75. VFEND [Concomitant]
     Indication: UNEVALUABLE EVENT
     Dosage: 1V
     Route: 042
     Dates: start: 20121123, end: 20121126
  76. VFEND [Concomitant]
     Indication: UNEVALUABLE EVENT
     Dosage: 1V
     Route: 042
     Dates: start: 20121127, end: 20121128
  77. TEICOPLANIN [Concomitant]
     Indication: UNEVALUABLE EVENT
     Dosage: 2V
     Route: 042
     Dates: start: 20121110, end: 20121112
  78. ELECTROLYTE SOLUTIONS [Concomitant]
     Indication: UNEVALUABLE EVENT
     Dosage: 1 PACK
     Route: 042
     Dates: start: 20121117, end: 20121119
  79. ELECTROLYTE SOLUTIONS [Concomitant]
     Indication: UNEVALUABLE EVENT
     Dosage: 1 PACK
     Route: 042
     Dates: start: 20121127, end: 20121128
  80. BISOLVON [Concomitant]
     Dosage: 1A
     Route: 042
     Dates: start: 20121123, end: 20121123
  81. BISOLVON [Concomitant]
     Dosage: 1A
     Route: 042
     Dates: start: 20121124, end: 20121126
  82. SOLDEM 3A [Concomitant]
     Dosage: 1V
     Route: 042
     Dates: start: 20121017, end: 20121126
  83. SOLDEM 1 [Concomitant]
     Dosage: 1V
     Route: 042
     Dates: start: 20121124, end: 20121124
  84. LASIX [Concomitant]
     Indication: UNEVALUABLE EVENT
     Dosage: 1A, 0.5 A
     Route: 042
     Dates: start: 20121124, end: 20121126
  85. ELASPOL [Concomitant]
     Indication: UNEVALUABLE EVENT
     Dosage: 3V
     Route: 042
     Dates: start: 20121124, end: 20121128
  86. TAKEPRON [Concomitant]
     Dosage: 1V
     Route: 042
     Dates: start: 20121124, end: 20121124
  87. TAKEPRON [Concomitant]
     Dosage: 1V
     Route: 042
     Dates: start: 20121125, end: 20121126
  88. TAKEPRON [Concomitant]
     Dosage: 1V
     Route: 042
     Dates: start: 20121127, end: 20121128
  89. DORMICUM [Concomitant]
     Dosage: 4A
     Route: 042
     Dates: start: 20121126, end: 20121126
  90. DORMICUM [Concomitant]
     Dosage: 4A
     Route: 042
     Dates: start: 20121127, end: 20121127
  91. HANP [Concomitant]
     Dosage: 3V
     Route: 042
     Dates: start: 20121126, end: 20121127
  92. HANP [Concomitant]
     Dosage: 3V
     Route: 042
     Dates: start: 20121128, end: 20121128

REACTIONS (3)
  - Anaemia [Recovered/Resolved]
  - Neutrophil count decreased [Recovered/Resolved]
  - Platelet count decreased [Recovered/Resolved]
